FAERS Safety Report 13330724 (Version 1)
Quarter: 2017Q1

REPORT INFORMATION
  Report Type: Spontaneous
  Country: US (occurrence: US)
  Receive Date: 20170314
  Receipt Date: 20170314
  Transmission Date: 20170428
  Serious: No
  Sender: FDA-Public Use
  Company Number: US-TEVA-716624ACC

PATIENT
  Age: 56 Year
  Sex: Male
  Weight: 97.61 kg

DRUGS (1)
  1. OXYCODONE HYDROCHLORIDE TABLETS [Suspect]
     Active Substance: OXYCODONE HYDROCHLORIDE
     Indication: BACK PAIN
     Dates: end: 20161004

REACTIONS (2)
  - Drug ineffective [Unknown]
  - Drug screen negative [Unknown]

NARRATIVE: CASE EVENT DATE: 20160907
